FAERS Safety Report 23246748 (Version 1)
Quarter: 2023Q4

REPORT INFORMATION
  Report Type: Spontaneous
  Country: US (occurrence: US)
  Receive Date: 20231130
  Receipt Date: 20231130
  Transmission Date: 20240110
  Serious: No
  Sender: FDA-Public Use
  Company Number: US-INCYTE CORPORATION-2023IN011869

PATIENT

DRUGS (1)
  1. OPZELURA [Suspect]
     Active Substance: RUXOLITINIB PHOSPHATE
     Dosage: 1.5 PERCENT, 60 MG, BID (APPLY A THIN LAYER TO AFFECTED AREA(S) ON HANDS TWICE DAILY AS DIRECTED)
     Route: 061
     Dates: start: 20231001

REACTIONS (2)
  - Fractured coccyx [Unknown]
  - Fall [Unknown]

NARRATIVE: CASE EVENT DATE: 20231111
